FAERS Safety Report 23582551 (Version 1)
Quarter: 2024Q1

REPORT INFORMATION
  Report Type: Report from Study
  Country: US (occurrence: US)
  Receive Date: 20240229
  Receipt Date: 20240229
  Transmission Date: 20240410
  Serious: Yes (Other)
  Sender: FDA-Public Use
  Company Number: US-JNJFOC-20240252790

PATIENT
  Sex: Male

DRUGS (4)
  1. ABIRATERONE ACETATE [Suspect]
     Active Substance: ABIRATERONE ACETATE
     Indication: Prostate cancer metastatic
     Route: 048
  2. ERLEADA [Suspect]
     Active Substance: APALUTAMIDE
     Indication: Prostate cancer metastatic
     Route: 048
  3. ENZALUTAMIDE [Suspect]
     Active Substance: ENZALUTAMIDE
     Indication: Prostate cancer metastatic
     Route: 065
  4. DAROLUTAMIDE [Suspect]
     Active Substance: DAROLUTAMIDE
     Indication: Prostate cancer metastatic
     Route: 065

REACTIONS (46)
  - Hypokalaemia [Unknown]
  - Sepsis [Unknown]
  - Seizure [Unknown]
  - Neutropenia [Unknown]
  - Pulmonary embolism [Unknown]
  - Thrombocytopenia [Unknown]
  - Neuropathy peripheral [Unknown]
  - Osteomyelitis [Unknown]
  - Leukopenia [Unknown]
  - Renal impairment [Unknown]
  - Deep vein thrombosis [Unknown]
  - Syncope [Unknown]
  - Cardiac disorder [Unknown]
  - Hypertension [Unknown]
  - Oedema [Unknown]
  - Insomnia [Unknown]
  - Hypertransaminasaemia [Unknown]
  - Fall [Unknown]
  - Fatigue [Unknown]
  - Anaemia [Unknown]
  - Arthralgia [Unknown]
  - Decreased appetite [Unknown]
  - Hot flush [Unknown]
  - Diarrhoea [Unknown]
  - Rash [Unknown]
  - Hypophosphataemia [Unknown]
  - Upper respiratory tract infection [Unknown]
  - Vomiting [Unknown]
  - Asthenia [Unknown]
  - Hyperglycaemia [Unknown]
  - Pyrexia [Unknown]
  - Constipation [Unknown]
  - Headache [Unknown]
  - Dysgeusia [Unknown]
  - Myalgia [Unknown]
  - Nausea [Unknown]
  - Weight decreased [Unknown]
  - Hyperhidrosis [Unknown]
  - Dizziness [Unknown]
  - Cellulitis [Unknown]
  - Weight increased [Unknown]
  - Mental status changes [Unknown]
  - Alopecia [Unknown]
  - Visual impairment [Unknown]
  - Pruritus [Unknown]
  - Toxicity to various agents [Unknown]
